FAERS Safety Report 5387162-7 (Version None)
Quarter: 2007Q3

REPORT INFORMATION
  Report Type: 
  Country: None (occurrence: None)
  Receive Date: 20070711
  Receipt Date: 20070629
  Transmission Date: 20080115
  Serious: Yes (Hospitalization)
  Sender: FDA-Public Use
  Company Number: 158378USA

PATIENT
  Age: 58 Year
  Sex: Female

DRUGS (5)
  1. METRONIDAZOLE [Suspect]
     Indication: VAGINAL INFECTION
     Dosage: VAGINAL
     Route: 067
  2. SERTRALINE [Concomitant]
  3. QUETIAPINE [Concomitant]
  4. LORAZEPAM [Concomitant]
  5. ZOLPIDEM TARTRATE [Concomitant]

REACTIONS (16)
  - ASTHENIA [None]
  - BLOOD LACTATE DEHYDROGENASE INCREASED [None]
  - BLOOD UREA DECREASED [None]
  - CHEST PAIN [None]
  - CHILLS [None]
  - DISSEMINATED INTRAVASCULAR COAGULATION [None]
  - HAEMATOCRIT DECREASED [None]
  - HAEMATURIA [None]
  - HAEMOGLOBIN DECREASED [None]
  - HEADACHE [None]
  - LETHARGY [None]
  - NAUSEA [None]
  - PALLOR [None]
  - PYREXIA [None]
  - THROMBOTIC THROMBOCYTOPENIC PURPURA [None]
  - VOMITING [None]
